FAERS Safety Report 10208684 (Version 1)
Quarter: 2014Q2

REPORT INFORMATION
  Report Type: Spontaneous
  Country: US (occurrence: US)
  Receive Date: 20140530
  Receipt Date: 20140530
  Transmission Date: 20141212
  Serious: No
  Sender: FDA-Public Use
  Company Number: US-PURDUE-USA-2014-0112651

PATIENT
  Age: 51 Year
  Sex: Female

DRUGS (1)
  1. MS CONTIN TABLETS [Suspect]
     Indication: PAIN
     Dosage: 30-100MG, BID
     Route: 048
     Dates: start: 2007, end: 2013

REACTIONS (5)
  - Drug withdrawal syndrome [Recovered/Resolved]
  - Influenza like illness [Unknown]
  - Drug ineffective [Unknown]
  - Nausea [Unknown]
  - Diarrhoea [Unknown]
